FAERS Safety Report 20690707 (Version 2)
Quarter: 2022Q3

REPORT INFORMATION
  Report Type: Spontaneous
  Country: US (occurrence: US)
  Receive Date: 20220408
  Receipt Date: 20220714
  Transmission Date: 20221027
  Serious: No
  Sender: FDA-Public Use
  Company Number: US-SA-SAC20220408000343

PATIENT
  Age: 9 Year
  Sex: Female

DRUGS (1)
  1. DUPIXENT [Suspect]
     Active Substance: DUPILUMAB
     Indication: Dermatitis atopic
     Dosage: UNK
     Route: 058
     Dates: start: 202202

REACTIONS (3)
  - Weight increased [Not Recovered/Not Resolved]
  - Anxiety disorder [Unknown]
  - Abnormal behaviour [Unknown]
